FAERS Safety Report 13613298 (Version 2)
Quarter: 2017Q3

REPORT INFORMATION
  Report Type: Spontaneous
  Country: US (occurrence: US)
  Receive Date: 20170605
  Receipt Date: 20170712
  Transmission Date: 20171127
  Serious: Yes (Death, Hospitalization)
  Sender: FDA-Public Use
  Company Number: US-VIFOR (INTERNATIONAL) INC.-VIT-2017-00060

PATIENT
  Age: 53 Year
  Sex: Male
  Weight: 74.91 kg

DRUGS (13)
  1. COLECALCIFEROL [Concomitant]
     Active Substance: CHOLECALCIFEROL
  2. METOPROLOL SUCCINATE. [Concomitant]
     Active Substance: METOPROLOL SUCCINATE
  3. CENTRUM SILVER [Concomitant]
     Active Substance: MINERALS\VITAMINS
  4. ACETYLSALICYLIC ACID [Concomitant]
     Active Substance: ASPIRIN
  5. VELTASSA [Suspect]
     Active Substance: PATIROMER
     Indication: HYPERKALAEMIA
     Route: 048
     Dates: start: 20161101
  6. METFORMIN [Suspect]
     Active Substance: METFORMIN HYDROCHLORIDE
  7. HYDROCHLOROTHIAZIDE. [Concomitant]
     Active Substance: HYDROCHLOROTHIAZIDE
  8. GABAPENTIN. [Concomitant]
     Active Substance: GABAPENTIN
  9. ATORVASTATIN CALCIUM. [Concomitant]
     Active Substance: ATORVASTATIN CALCIUM
  10. BENAZEPRIL HYDROCHLORIDE/AMLODIPINE BESILATE [Concomitant]
  11. LORAZEPAM. [Concomitant]
     Active Substance: LORAZEPAM
  12. LISINOPRIL. [Concomitant]
     Active Substance: LISINOPRIL
  13. CITALOPRAM HYDROBROMIDE. [Concomitant]
     Active Substance: CITALOPRAM HYDROBROMIDE

REACTIONS (4)
  - Type 2 diabetes mellitus [Fatal]
  - Pneumonia [Unknown]
  - Chronic kidney disease [Fatal]
  - Cardiac failure [Unknown]

NARRATIVE: CASE EVENT DATE: 20161129
